FAERS Safety Report 5014054-5 (Version None)
Quarter: 2006Q2

REPORT INFORMATION
  Report Type: 
  Country: None (occurrence: None)
  Receive Date: 20060414
  Receipt Date: 20060202
  Transmission Date: 20061013
  Serious: No
  Sender: FDA-Public Use
  Company Number: 2006SP000577

PATIENT
  Age: 42 Year
  Sex: Female
  Weight: 54.4316 kg

DRUGS (4)
  1. LUNESTA [Suspect]
     Indication: INSOMNIA
     Dosage: 3 MG;HS;ORAL
     Route: 048
     Dates: start: 20060126, end: 20060201
  2. CARDIZEM [Concomitant]
  3. ATORVASTATIN CALCIUM [Concomitant]
  4. AMBIEN [Concomitant]

REACTIONS (4)
  - DYSGEUSIA [None]
  - MIDDLE INSOMNIA [None]
  - THIRST [None]
  - VOMITING [None]
